FAERS Safety Report 6294787-3 (Version None)
Quarter: 2009Q3

REPORT INFORMATION
  Report Type: 
  Country: None (occurrence: None)
  Receive Date: 20090730
  Receipt Date: 20080729
  Transmission Date: 20100115
  Serious: No
  Sender: FDA-Public Use
  Company Number: 2008-1164

PATIENT
  Age: 50 Year
  Sex: Female
  Weight: 72 kg

DRUGS (2)
  1. LANREOTIDE AUTOGEL (LANREOTIDE) (LANREOTIDE ACETATE) [Suspect]
     Dosage: 90 MG (90 MG, 1 IN 4 WK) SUBCUTANEOUS
     Route: 058
     Dates: start: 20080625
  2. LEVOTHYROXINE SODIUM [Concomitant]

REACTIONS (4)
  - ABDOMINAL DISTENSION [None]
  - ABDOMINAL PAIN UPPER [None]
  - DIARRHOEA [None]
  - FLATULENCE [None]
